FAERS Safety Report 18629034 (Version 1)
Quarter: 2020Q4

REPORT INFORMATION
  Report Type: Spontaneous
  Country: ES (occurrence: ES)
  Receive Date: 20201217
  Receipt Date: 20201217
  Transmission Date: 20210114
  Serious: Yes (Death, Hospitalization, Other)
  Sender: FDA-Public Use
  Company Number: ES-PFIZER INC-2020496146

PATIENT

DRUGS (2)
  1. RILAST [BUDESONIDE;FORMOTEROL FUMARATE] [Concomitant]
     Indication: ASTHMA
     Dosage: UNK
     Route: 064
     Dates: start: 201702
  2. ARTILOG [Suspect]
     Active Substance: CELECOXIB
     Dosage: 200 MG, 1X/DAY
     Route: 064
     Dates: start: 20181104, end: 20181106

REACTIONS (4)
  - Foetal exposure during pregnancy [Fatal]
  - Renal aplasia [Fatal]
  - Maternal exposure during pregnancy [Fatal]
  - Congenital renal cyst [Fatal]

NARRATIVE: CASE EVENT DATE: 20181104
